FAERS Safety Report 18793645 (Version 1)
Quarter: 2021Q1

REPORT INFORMATION
  Report Type: Spontaneous
  Country: US (occurrence: US)
  Receive Date: 20210127
  Receipt Date: 20210127
  Transmission Date: 20210419
  Serious: Yes (Other)
  Sender: FDA-Public Use
  Company Number: US-GLAXOSMITHKLINE-USCH2021000792

PATIENT
  Age: 62 Year
  Sex: Female

DRUGS (1)
  1. ROBITUSSIN HONEY MAXIMUM STRENGTH NIGHTTIME COUGH DM [Suspect]
     Active Substance: DEXTROMETHORPHAN HYDROBROMIDE\DOXYLAMINE SUCCINATE
     Indication: COUGH
     Dosage: UNK, PRN
     Dates: start: 20210105

REACTIONS (2)
  - Loss of consciousness [Unknown]
  - Product use issue [Unknown]
